FAERS Safety Report 20222724 (Version 1)
Quarter: 2021Q4

REPORT INFORMATION
  Report Type: Report from Study
  Country: US (occurrence: US)
  Receive Date: 20211223
  Receipt Date: 20211223
  Transmission Date: 20220303
  Serious: Yes (Hospitalization, Other)
  Sender: FDA-Public Use
  Company Number: US-GILEAD-2021-0562309

PATIENT
  Sex: Male

DRUGS (4)
  1. AMBRISENTAN [Suspect]
     Active Substance: AMBRISENTAN
     Indication: Pulmonary hypertension
     Dosage: 10 MG, QD
     Route: 065
     Dates: start: 20210303
  2. AMBRISENTAN [Suspect]
     Active Substance: AMBRISENTAN
     Indication: Pulmonary arterial hypertension
  3. UPTRAVI [Concomitant]
     Active Substance: SELEXIPAG
  4. TADALAFIL [Concomitant]
     Active Substance: TADALAFIL

REACTIONS (6)
  - Chest pain [Not Recovered/Not Resolved]
  - Nausea [Recovering/Resolving]
  - Vomiting [Unknown]
  - Pulmonary thrombosis [Unknown]
  - Pulmonary arterial hypertension [Unknown]
  - Product dose omission in error [Not Recovered/Not Resolved]
